FAERS Safety Report 17092977 (Version 1)
Quarter: 2019Q4

REPORT INFORMATION
  Report Type: Spontaneous
  Country: US (occurrence: US)
  Receive Date: 20191129
  Receipt Date: 20191129
  Transmission Date: 20200122
  Serious: No
  Sender: FDA-Public Use
  Company Number: US-GLAXOSMITHKLINE-US2019210060

PATIENT
  Sex: Male

DRUGS (1)
  1. ABREVA [Suspect]
     Active Substance: DOCOSANOL
     Indication: ORAL HERPES
     Dosage: UNK (5 TIMES A DAY)
     Route: 065
     Dates: start: 20191115

REACTIONS (6)
  - Lip dry [Unknown]
  - Dry mouth [Recovered/Resolved]
  - Erythema [Unknown]
  - Application site erosion [Unknown]
  - Application site scab [Unknown]
  - Application site vesicles [Unknown]
